FAERS Safety Report 4674281-3 (Version None)
Quarter: 2005Q2

REPORT INFORMATION
  Report Type: 
  Country: None (occurrence: None)
  Receive Date: 20050524
  Receipt Date: 20050510
  Transmission Date: 20051028
  Serious: Yes (Hospitalization)
  Sender: FDA-Public Use
  Company Number: USA030843959

PATIENT
  Age: 77 Year
  Sex: Female
  Weight: 47 kg

DRUGS (13)
  1. FORTEO [Suspect]
     Indication: OSTEOPOROSIS
     Dosage: 20 UG DAY
     Dates: start: 20030801
  2. THENOIC ACID [Concomitant]
  3. MIRAPEX (MIRAPEX) [Concomitant]
  4. PREVACID [Concomitant]
  5. LORAZEPAM [Concomitant]
  6. LASIX [Concomitant]
  7. VIT C TAB [Concomitant]
  8. VITAMIN D [Concomitant]
  9. VITAMIN E [Concomitant]
  10. CITRACAL WITH VITAMIN D [Concomitant]
  11. TENORMIN (ATENOLOL EG) [Concomitant]
  12. LODOSYN [Concomitant]
  13. SINEMET [Concomitant]

REACTIONS (20)
  - ARTHROPATHY [None]
  - BALANCE DISORDER [None]
  - BLOOD CALCIUM INCREASED [None]
  - BONE PAIN [None]
  - DIFFICULTY IN WALKING [None]
  - DIZZINESS [None]
  - FALL [None]
  - FEELING ABNORMAL [None]
  - HYPOAESTHESIA [None]
  - INJECTION SITE ERYTHEMA [None]
  - INJECTION SITE HAEMORRHAGE [None]
  - INJECTION SITE INDURATION [None]
  - MYALGIA [None]
  - NERVOUSNESS [None]
  - OEDEMA PERIPHERAL [None]
  - OSTEOCALCIN INCREASED [None]
  - OVERDOSE [None]
  - PHARMACEUTICAL PRODUCT COMPLAINT [None]
  - WRIST FRACTURE [None]
  - WRONG TECHNIQUE IN DRUG USAGE PROCESS [None]
